FAERS Safety Report 5528352-X (Version None)
Quarter: 2007Q4

REPORT INFORMATION
  Report Type: 
  Country: None (occurrence: None)
  Receive Date: 20071128
  Receipt Date: 20071119
  Transmission Date: 20080405
  Serious: Yes (Hospitalization)
  Sender: FDA-Public Use
  Company Number: US-AVENTIS-200717466US

PATIENT
  Sex: Male
  Weight: 90.3 kg

DRUGS (1)
  1. ALLEGRA [Suspect]
     Route: 048
     Dates: start: 20070901, end: 20070919

REACTIONS (3)
  - DYSPNOEA [None]
  - GASTROOESOPHAGEAL REFLUX DISEASE [None]
  - SENSATION OF FOREIGN BODY [None]
